FAERS Safety Report 17330238 (Version 1)
Quarter: 2020Q1

REPORT INFORMATION
  Report Type: Spontaneous
  Country: US (occurrence: US)
  Receive Date: 20200127
  Receipt Date: 20200127
  Transmission Date: 20200409
  Serious: Yes (Other)
  Sender: FDA-Public Use
  Company Number: None

PATIENT
  Age: 21 Year
  Sex: Female
  Weight: 66.15 kg

DRUGS (1)
  1. VIIBRYD [Suspect]
     Active Substance: VILAZODONE HYDROCHLORIDE
     Indication: DEPRESSION
     Route: 048
     Dates: start: 20200108, end: 20200113

REACTIONS (7)
  - Manufacturing materials issue [None]
  - Reaction to excipient [None]
  - Dysphagia [None]
  - Documented hypersensitivity to administered product [None]
  - Abdominal pain [None]
  - Condition aggravated [None]
  - Eosinophilic oesophagitis [None]

NARRATIVE: CASE EVENT DATE: 20200108
